FAERS Safety Report 4943037-6 (Version None)
Quarter: 2006Q1

REPORT INFORMATION
  Report Type: 
  Country: None (occurrence: None)
  Receive Date: 20060314
  Receipt Date: 20060303
  Transmission Date: 20060701
  Serious: Yes (Hospitalization)
  Sender: FDA-Public Use
  Company Number: FR-GLAXOSMITHKLINE-B0414958A

PATIENT
  Sex: Male

DRUGS (7)
  1. AVANDAMET [Suspect]
     Route: 048
  2. AMAREL [Concomitant]
     Route: 048
  3. TENORMIN [Concomitant]
     Route: 048
  4. SECTRAL [Concomitant]
     Route: 048
  5. ELISOR [Concomitant]
     Route: 048
  6. ASASANTINE [Concomitant]
     Route: 048
  7. OMEPRAZOLE [Concomitant]
     Route: 048

REACTIONS (1)
  - PANCYTOPENIA [None]
